FAERS Safety Report 4490877-6 (Version None)
Quarter: 2004Q4

REPORT INFORMATION
  Report Type: 
  Country: None (occurrence: None)
  Receive Date: 20041027
  Receipt Date: 20041014
  Transmission Date: 20050328
  Serious: Yes (Other)
  Sender: FDA-Public Use
  Company Number: 2004068343

PATIENT
  Sex: Female

DRUGS (6)
  1. NEURONTIN [Suspect]
     Indication: NEUROPATHY
     Dosage: 800 MG (400 MG,2 IN 1 D), ORAL
     Route: 048
     Dates: start: 20010101
  2. ATORVASTATIN CALCIUM [Concomitant]
  3. BROMAZEPAM (BROMAZEPAM) [Concomitant]
  4. AMITRIPTYLINE HYDROCHLORIDE [Concomitant]
  5. CARBAMAZEPINE [Concomitant]
  6. DICLOFENAC SODIUM [Concomitant]

REACTIONS (6)
  - CONFUSIONAL STATE [None]
  - MOVEMENT DISORDER [None]
  - NEUROPATHY [None]
  - PAIN [None]
  - PYREXIA [None]
  - SOMNOLENCE [None]
